FAERS Safety Report 4276669-1 (Version None)
Quarter: 2004Q1

REPORT INFORMATION
  Report Type: 
  Country: None (occurrence: None)
  Receive Date: 20040120
  Receipt Date: 20040106
  Transmission Date: 20041129
  Serious: Yes (Other)
  Sender: FDA-Public Use
  Company Number: 200410121BCC

PATIENT
  Sex: Female

DRUGS (1)
  1. MIDOL [Suspect]
     Dosage: 1000/120/30 MG, ONCE, ORAL
     Route: 048

REACTIONS (7)
  - ANXIETY [None]
  - DIZZINESS [None]
  - DYSPNOEA [None]
  - HYPERHIDROSIS [None]
  - SYNCOPE [None]
  - TREMOR [None]
  - VISION BLURRED [None]
